FAERS Safety Report 23320322 (Version 1)
Quarter: 2023Q4

REPORT INFORMATION
  Report Type: Spontaneous
  Country: US (occurrence: US)
  Receive Date: 20231220
  Receipt Date: 20231220
  Transmission Date: 20240109
  Serious: Yes (Other)
  Sender: FDA-Public Use
  Company Number: US-BAYER-2023A176561

PATIENT
  Age: 71 Year

DRUGS (19)
  1. BAYER LOW DOSE [Suspect]
     Active Substance: ASPIRIN
     Indication: Heart transplant
     Dosage: 1 DF, QD
  2. VYNDAMAX [Suspect]
     Active Substance: TAFAMIDIS
     Indication: Amyloidosis
     Dosage: 61 MG, ONCE
     Route: 048
  3. PROGRAF [Concomitant]
     Active Substance: TACROLIMUS
     Dosage: 4 MG, BID
  4. CELLCEPT [Concomitant]
     Active Substance: MYCOPHENOLATE MOFETIL
     Dosage: 1000 MG
  5. PREDNISONE [Concomitant]
     Active Substance: PREDNISONE
     Dosage: 20 MG, QD
  6. NYSTATIN [Concomitant]
     Active Substance: NYSTATIN
     Dosage: 4 DF, QID
  7. BACTRIM [Concomitant]
     Active Substance: SULFAMETHOXAZOLE\TRIMETHOPRIM
     Indication: Antibiotic therapy
  8. CALCIUM [Concomitant]
     Active Substance: CALCIUM
     Indication: Osteoporosis
     Dosage: 1 DF, TID
  9. CALCIUM [Concomitant]
     Active Substance: CALCIUM
     Indication: Bone loss
  10. VITAMIN D NOS [Concomitant]
     Active Substance: VITAMIN D NOS
     Indication: Osteoporosis
     Dosage: 1 DF, TID
  11. VITAMIN D NOS [Concomitant]
     Active Substance: VITAMIN D NOS
     Indication: Bone loss
  12. MAGNESIUM OXIDE [Concomitant]
     Active Substance: MAGNESIUM OXIDE
     Indication: Electrolyte substitution therapy
  13. OMEPRAZOLE [Concomitant]
     Active Substance: OMEPRAZOLE
     Indication: Dyspepsia
  14. PRAVASTATIN [Concomitant]
     Active Substance: PRAVASTATIN
     Indication: Blood cholesterol decreased
  15. SPIRONOLACTONE [Concomitant]
     Active Substance: SPIRONOLACTONE
     Indication: Diuretic therapy
     Dosage: 25 MG, QD
  16. ACYCLOVIR [Concomitant]
     Active Substance: ACYCLOVIR
     Indication: Antiviral treatment
     Dosage: UNK UNK, QD
  17. FERROUS SULFATE\FOLIC ACID [Concomitant]
     Active Substance: FERROUS SULFATE\FOLIC ACID
  18. SENOKOT [Concomitant]
     Active Substance: SENNOSIDES
     Indication: Constipation prophylaxis
  19. FLOMOX [AMOXICILLIN SODIUM] [Concomitant]
     Dosage: 4 MG, QD

REACTIONS (2)
  - Heart transplant [Unknown]
  - Product use in unapproved indication [None]
